FAERS Safety Report 5121977-5 (Version None)
Quarter: 2006Q4

REPORT INFORMATION
  Report Type: 
  Country: None (occurrence: None)
  Receive Date: 20061003
  Receipt Date: 20060920
  Transmission Date: 20070319
  Serious: Yes (Other)
  Sender: FDA-Public Use
  Company Number: 2006114505

PATIENT
  Sex: Female

DRUGS (2)
  1. BEXTRA [Suspect]
     Indication: OSTEOARTHRITIS
     Dates: start: 20021123
  2. VIOXX [Suspect]
     Dates: start: 20000713, end: 20010729

REACTIONS (5)
  - BRAIN DAMAGE [None]
  - ILL-DEFINED DISORDER [None]
  - STEVENS-JOHNSON SYNDROME [None]
  - SUBARACHNOID HAEMORRHAGE [None]
  - VENOUS THROMBOSIS [None]
